FAERS Safety Report 11906716 (Version 1)
Quarter: 2016Q1

REPORT INFORMATION
  Report Type: Spontaneous
  Country: US (occurrence: None)
  Receive Date: 20160108
  Receipt Date: 20160108
  Transmission Date: 20160526
  Serious: Yes (Hospitalization)
  Sender: FDA-Public Use
  Company Number: None

PATIENT
  Age: 57 Year
  Sex: Male
  Weight: 70.31 kg

DRUGS (2)
  1. TEMOZOLOMIDE 75MG/SQ/M [Suspect]
     Active Substance: TEMOZOLOMIDE
     Indication: GLIOBLASTOMA
     Dosage: DAY 1-21
     Route: 048
     Dates: start: 20151223
  2. BEVACIZUMAB 10 MG/KG [Suspect]
     Active Substance: BEVACIZUMAB
     Indication: GLIOBLASTOMA
     Dosage: DAY 1 + 15
     Route: 042
     Dates: start: 20151223

REACTIONS (4)
  - Hypoxia [None]
  - Asthenia [None]
  - Pneumonia [None]
  - Mental status changes [None]

NARRATIVE: CASE EVENT DATE: 20160106
